FAERS Safety Report 5737856-6 (Version None)
Quarter: 2008Q2

REPORT INFORMATION
  Report Type: 
  Country: None (occurrence: None)
  Receive Date: 20080513
  Receipt Date: 20080513
  Transmission Date: 20081010
  Serious: No
  Sender: FDA-Public Use
  Company Number: None

PATIENT

DRUGS (1)
  1. CREST PRO HEALTH NIGHT MOUTHWASH [Suspect]

REACTIONS (5)
  - EMOTIONAL DISTRESS [None]
  - PHARMACEUTICAL PRODUCT COMPLAINT [None]
  - THERAPEUTIC PRODUCT CONTAMINATION [None]
  - TONGUE BLACK HAIRY [None]
  - TOOTH DISCOLOURATION [None]
